FAERS Safety Report 4818596-4 (Version None)
Quarter: 2005Q4

REPORT INFORMATION
  Report Type: 
  Country: None (occurrence: None)
  Receive Date: 20051101
  Receipt Date: 20051017
  Transmission Date: 20060501
  Serious: Yes (Hospitalization)
  Sender: FDA-Public Use
  Company Number: 2005-133658-NL

PATIENT
  Age: 30 Year
  Sex: Female

DRUGS (2)
  1. PUREGON [Suspect]
     Dosage: DF
  2. PREGNYL [Suspect]
     Dosage: DF

REACTIONS (11)
  - ABDOMINAL PAIN LOWER [None]
  - ABORTION MISSED [None]
  - ADNEXA UTERI MASS [None]
  - BLOOD URINE PRESENT [None]
  - CONSTIPATION [None]
  - ECTOPIC PREGNANCY [None]
  - MULTIPLE PREGNANCY [None]
  - OVARIAN MASS [None]
  - PERITONEAL HAEMORRHAGE [None]
  - UTERINE LEIOMYOMA [None]
  - VOMITING [None]
